FAERS Safety Report 8985132 (Version 2)
Quarter: 2013Q1

REPORT INFORMATION
  Report Type: Spontaneous
  Country: US (occurrence: US)
  Receive Date: 20121226
  Receipt Date: 20130115
  Transmission Date: 20140127
  Serious: Yes (Death)
  Sender: FDA-Public Use
  Company Number: PHEH2012US025179

PATIENT
  Sex: Female
  Weight: 65 kg

DRUGS (1)
  1. SANDOSTATIN LAR DEPOT [Suspect]
     Indication: METASTATIC CARCINOID TUMOUR
     Dosage: 30 MG

REACTIONS (1)
  - Metastatic carcinoid tumour [Fatal]
